FAERS Safety Report 16183986 (Version 1)
Quarter: 2019Q2

REPORT INFORMATION
  Report Type: Spontaneous
  Country: US (occurrence: US)
  Receive Date: 20190410
  Receipt Date: 20190410
  Transmission Date: 20190711
  Serious: No
  Sender: FDA-Public Use
  Company Number: None

PATIENT
  Sex: Female
  Weight: 56.1 kg

DRUGS (9)
  1. OMEGA 3 [Concomitant]
     Active Substance: OMEGA-3 FATTY ACIDS
  2. KEPPRA [Concomitant]
     Active Substance: LEVETIRACETAM
  3. VITAMIN D NOS [Concomitant]
     Active Substance: VITAMIN D NOS
  4. TYKERB [Suspect]
     Active Substance: LAPATINIB DITOSYLATE
     Indication: BREAST CANCER
     Route: 048
     Dates: start: 20181107
  5. MULTIVITAMIN [Concomitant]
     Active Substance: VITAMINS
  6. CALCIUM [Concomitant]
     Active Substance: CALCIUM
  7. IRON [Concomitant]
     Active Substance: IRON
  8. SYNTHROID [Concomitant]
     Active Substance: LEVOTHYROXINE SODIUM
  9. ATIVAN [Concomitant]
     Active Substance: LORAZEPAM

REACTIONS (1)
  - Diarrhoea [None]
